FAERS Safety Report 9651925 (Version 1)
Quarter: 2013Q4

REPORT INFORMATION
  Report Type: Spontaneous
  Country: US (occurrence: None)
  Receive Date: 20131028
  Receipt Date: 20131028
  Transmission Date: 20140711
  Serious: Yes (Life-Threatening, Hospitalization)
  Sender: FDA-Public Use
  Company Number: None

PATIENT
  Age: 80 Year
  Sex: Female
  Weight: 66.6 kg

DRUGS (16)
  1. JANUMET [Suspect]
     Indication: TYPE 2 DIABETES MELLITUS
     Dosage: 1 TABLET
     Route: 048
     Dates: end: 20131023
  2. RAMIPRIL [Suspect]
     Indication: TYPE 2 DIABETES MELLITUS
     Dosage: 1 CAPSULE QD ORAL
     Route: 048
     Dates: end: 20131023
  3. RAMIPRIL [Suspect]
     Indication: HYPERTENSION
     Dosage: 1 CAPSULE QD ORAL
     Route: 048
     Dates: end: 20131023
  4. CIPROFLOXACIN [Concomitant]
  5. METRONIDAZOLE [Concomitant]
  6. ATORVASTATIN [Concomitant]
  7. CARVEDILOL [Concomitant]
  8. MELATONIN [Concomitant]
  9. NOVOLOG [Concomitant]
  10. LEVEMIR FLEXPEN [Concomitant]
  11. VITAMIN D2 [Concomitant]
  12. ALENDRONATE [Concomitant]
  13. FUROSEMIDE [Concomitant]
  14. PANTOPRAZOLE [Concomitant]
  15. LEVOFLOXACIN [Concomitant]
  16. OMEPRAZOLE [Concomitant]

REACTIONS (3)
  - Metabolic acidosis [None]
  - Hyperkalaemia [None]
  - Anion gap increased [None]
